FAERS Safety Report 6503081-4 (Version None)
Quarter: 2009Q4

REPORT INFORMATION
  Report Type: 
  Country: None (occurrence: None)
  Receive Date: 20091217
  Receipt Date: 20091209
  Transmission Date: 20100525
  Serious: Yes (Hospitalization)
  Sender: FDA-Public Use
  Company Number: DE-BAXTER-2009BH019179

PATIENT
  Age: 1 Month
  Sex: Male
  Weight: 4 kg

DRUGS (6)
  1. SEVOFLURANE [Suspect]
     Indication: STUPOR
     Route: 055
     Dates: start: 20090903, end: 20090903
  2. SEVOFLURANE [Suspect]
     Indication: CLEFT LIP REPAIR
     Route: 055
     Dates: start: 20090903, end: 20090903
  3. ROCURONIUM BROMIDE [Suspect]
     Indication: HYPOTONIA
     Route: 042
     Dates: start: 20090903, end: 20090903
  4. SUFENTANIL CITRATE [Suspect]
     Indication: ANALGESIC THERAPY
     Route: 042
     Dates: start: 20090903, end: 20090903
  5. CEFUROXIME [Suspect]
     Indication: ANTIBIOTIC PROPHYLAXIS
     Route: 042
     Dates: start: 20090903, end: 20090903
  6. ZYMAFLUOR CALCIUM [Concomitant]
     Indication: PROPHYLAXIS
     Route: 065

REACTIONS (6)
  - DEEP VEIN THROMBOSIS [None]
  - GRAND MAL CONVULSION [None]
  - HYPOTHERMIA [None]
  - METABOLIC ACIDOSIS [None]
  - STATUS EPILEPTICUS [None]
  - UNRESPONSIVE TO STIMULI [None]
